FAERS Safety Report 7264264-1 (Version None)
Quarter: 2011Q1

REPORT INFORMATION
  Report Type: 
  Country: None (occurrence: None)
  Receive Date: 20110131
  Receipt Date: 20110114
  Transmission Date: 20110831
  Serious: No
  Sender: FDA-Public Use
  Company Number: US-BIOGENIDEC-2011BI002860

PATIENT
  Sex: Female

DRUGS (1)
  1. TYSABRI [Suspect]
     Indication: MULTIPLE SCLEROSIS
     Route: 042
     Dates: start: 20080612

REACTIONS (6)
  - GLOBULINS DECREASED [None]
  - FALL [None]
  - BALANCE DISORDER [None]
  - DYSPNOEA [None]
  - OEDEMA PERIPHERAL [None]
  - ASTHENIA [None]
